FAERS Safety Report 6087503-1 (Version None)
Quarter: 2009Q1

REPORT INFORMATION
  Report Type: 
  Country: None (occurrence: None)
  Receive Date: 20090219
  Receipt Date: 20090206
  Transmission Date: 20090719
  Serious: Yes (Other)
  Sender: FDA-Public Use
  Company Number: PI-02909

PATIENT
  Age: 77 Year
  Sex: Male

DRUGS (2)
  1. CHLORAPREP WITH TINT [Suspect]
     Indication: ANTIBIOTIC PROPHYLAXIS
     Dosage: 26 ML, ONCE, TOPICAL
     Route: 061
     Dates: start: 20081219
  2. CHLORAPREP WITH TINT [Suspect]
     Indication: PREOPERATIVE CARE
     Dosage: 26 ML, ONCE, TOPICAL
     Route: 061
     Dates: start: 20081219

REACTIONS (4)
  - ERYTHEMA [None]
  - PROCEDURAL COMPLICATION [None]
  - SKIN DISORDER [None]
  - THERMAL BURN [None]
